FAERS Safety Report 8465598-5 (Version None)
Quarter: 2012Q2

REPORT INFORMATION
  Report Type: 
  Country: None (occurrence: None)
  Receive Date: 20120626
  Receipt Date: 20120618
  Transmission Date: 20120825
  Serious: Yes (Hospitalization, Other)
  Sender: FDA-Public Use
  Company Number: US-BAYER-2012-061775

PATIENT
  Age: 36 Year
  Sex: Female
  Weight: 111.11 kg

DRUGS (6)
  1. ALLEGRA-D 12 HOUR [Concomitant]
     Indication: MULTIPLE ALLERGIES
  2. MOTRIN [Concomitant]
     Indication: PAIN
     Dosage: 600 MG, EVERY 8 HOURS
  3. DARVON COMPOUND [Concomitant]
     Indication: PAIN
     Dosage: 2 TABLETS, Q4HR
  4. TYLENOL W/ CODEINE NO. 3 [Concomitant]
  5. LEVAQUIN [Concomitant]
     Indication: PYREXIA
     Dosage: 750 MG, DAILY
  6. YAZ [Suspect]

REACTIONS (4)
  - CHOLECYSTITIS CHRONIC [None]
  - PULMONARY EMBOLISM [None]
  - THROMBOPHLEBITIS [None]
  - DEEP VEIN THROMBOSIS [None]
